FAERS Safety Report 17503210 (Version 1)
Quarter: 2020Q1

REPORT INFORMATION
  Report Type: Spontaneous
  Country: DE (occurrence: DE)
  Receive Date: 20200305
  Receipt Date: 20200305
  Transmission Date: 20200409
  Serious: Yes (Other)
  Sender: FDA-Public Use
  Company Number: DE-PFIZER INC-2020090596

PATIENT
  Sex: Female
  Weight: 90 kg

DRUGS (1)
  1. CYTOTEC [Suspect]
     Active Substance: MISOPROSTOL
     Indication: LABOUR INDUCTION
     Dosage: 1 DF, UNK, 1 TABLET
     Route: 048
     Dates: start: 20090524

REACTIONS (9)
  - Intestinal atresia [Unknown]
  - Pain [Unknown]
  - Abdominal pain [Not Recovered/Not Resolved]
  - Exposure during pregnancy [Unknown]
  - Dysuria [Not Recovered/Not Resolved]
  - Abdominal discomfort [Unknown]
  - Therapeutic product effect delayed [Unknown]
  - Off label use [Unknown]
  - Incontinence [Not Recovered/Not Resolved]

NARRATIVE: CASE EVENT DATE: 20090524
